FAERS Safety Report 13467969 (Version 2)
Quarter: 2017Q2

REPORT INFORMATION
  Report Type: Report from Study
  Country: US (occurrence: US)
  Receive Date: 20170421
  Receipt Date: 20170516
  Transmission Date: 20170830
  Serious: Yes (Other)
  Sender: FDA-Public Use
  Company Number: US-TEVA-761977USA

PATIENT
  Age: 15 Year
  Sex: Male

DRUGS (7)
  1. KAPVAY [Concomitant]
     Active Substance: CLONIDINE HYDROCHLORIDE
     Dosage: .4 MILLIGRAM DAILY; TWO 0.1 MG, TWICE DAILY
  2. QUETIAPINE. [Concomitant]
     Active Substance: QUETIAPINE
     Dosage: 100 MG IN THE MORNING, 150 MG AT 4 PM, 600 MG AT 7 PM
  3. CLOZAPINE. [Suspect]
     Active Substance: CLOZAPINE
     Route: 048
     Dates: start: 201704
  4. FLURAZEPAM [Concomitant]
     Active Substance: FLURAZEPAM\FLURAZEPAM HYDROCHLORIDE
     Dosage: 30 MILLIGRAM DAILY; AT BEDTIME
  5. CLOZAPINE. [Suspect]
     Active Substance: CLOZAPINE
     Route: 048
     Dates: end: 201704
  6. LITHIUM. [Concomitant]
     Active Substance: LITHIUM
     Dosage: 1800 MILLIGRAM DAILY;
  7. TRIHEXYPHENIDYL [Concomitant]
     Active Substance: TRIHEXYPHENIDYL
     Dosage: 15 MILLIGRAM DAILY;

REACTIONS (1)
  - Granulocytopenia [Recovered/Resolved]

NARRATIVE: CASE EVENT DATE: 20170413
